FAERS Safety Report 9375541 (Version 2)
Quarter: 2013Q3

REPORT INFORMATION
  Report Type: Report from Study
  Country: JP (occurrence: JP)
  Receive Date: 20130628
  Receipt Date: 20130805
  Transmission Date: 20140515
  Serious: Yes (Death, Hospitalization)
  Sender: FDA-Public Use
  Company Number: JP-NAPPMUNDI-GBR-2013-0014695

PATIENT
  Age: 84 Year
  Sex: Female

DRUGS (14)
  1. BTDS PATCH [Suspect]
     Indication: PAIN
     Dosage: 10 MCG, Q1H
     Route: 062
     Dates: start: 20121107, end: 20121111
  2. BTDS PATCH [Suspect]
     Dosage: 5 MCG, Q1H
     Route: 062
     Dates: start: 20120213, end: 20121107
  3. LOXIPAIN [Concomitant]
     Indication: BACK PAIN
     Dosage: 180 MG, DAILY
     Route: 048
     Dates: start: 20090919
  4. INSIDE                             /01593201/ [Concomitant]
     Indication: BACK PAIN
     Dosage: 1 DF, DAILY
     Route: 061
     Dates: start: 20090919
  5. FORTEO [Concomitant]
     Indication: OSTEOPOROSIS
     Dosage: UNK
     Route: 042
     Dates: start: 20120220
  6. OLMETEC [Concomitant]
     Indication: HYPERTENSION
     Dosage: 20 MG, DAILY
     Route: 048
     Dates: start: 20050527
  7. CONIEL [Concomitant]
     Indication: HYPERTENSION
     Dosage: 8 MG, DAILY
     Route: 048
     Dates: start: 20050527
  8. TAKEPRON [Concomitant]
     Indication: GASTROOESOPHAGEAL REFLUX DISEASE
     Dosage: 15 MG, DAILY
     Route: 048
  9. PAXIL [Concomitant]
     Indication: DEPRESSION
     Dosage: 10 MG, DAILY
     Route: 048
     Dates: start: 20090710
  10. LIPOVAS                            /00848101/ [Concomitant]
     Indication: HYPERLIPIDAEMIA
     Dosage: 5 MG, DAILY
     Route: 048
     Dates: start: 20090710
  11. THYRADIN S [Concomitant]
     Indication: HYPOTHYROIDISM
     Dosage: 2.5 MG, DAILY
     Route: 048
     Dates: start: 20090710
  12. GASMOTIN [Concomitant]
     Indication: PROPHYLAXIS
     Dosage: 15 MG, DAILY
     Route: 048
  13. GRIMAC [Concomitant]
     Indication: PROPHYLAXIS
     Dosage: 1.5 G, DAILY
     Route: 048
  14. SENNOSIDE                          /00571901/ [Concomitant]
     Indication: CONSTIPATION
     Dosage: 24 MG, DAILY
     Route: 048
     Dates: start: 20120218

REACTIONS (2)
  - Acute myocardial infarction [Fatal]
  - Pneumonia [Recovering/Resolving]
